FAERS Safety Report 7718124-X (Version None)
Quarter: 2011Q3

REPORT INFORMATION
  Report Type: 
  Country: None (occurrence: None)
  Receive Date: 20110830
  Receipt Date: 20110820
  Transmission Date: 20111222
  Serious: Yes (Other)
  Sender: FDA-Public Use
  Company Number: US-JNJFOC-20110707198

PATIENT
  Sex: Female
  Weight: 78.02 kg

DRUGS (6)
  1. REMICADE [Suspect]
     Dosage: 2 INDUCTION DOSES IN 2011
     Route: 042
     Dates: start: 20110103
  2. REMICADE [Suspect]
     Dosage: 2 INDUCTION DOSES IN 2011
     Route: 042
     Dates: start: 20110606
  3. REMICADE [Suspect]
     Dosage: 2 INDUCTION DOSES IN 2011
     Route: 042
     Dates: start: 20110427
  4. REMICADE [Suspect]
     Dosage: 2 INDUCTION DOSES IN 2011
     Route: 042
     Dates: start: 20110117
  5. REMICADE [Suspect]
     Dosage: 2 INDUCTION DOSES IN 2011
     Route: 042
     Dates: start: 20110214
  6. REMICADE [Suspect]
     Indication: ANKYLOSING SPONDYLITIS
     Dosage: 2 INDUCTION DOSES IN 2011
     Route: 042
     Dates: start: 20110221

REACTIONS (1)
  - LUPUS-LIKE SYNDROME [None]
